FAERS Safety Report 16392308 (Version 1)
Quarter: 2019Q2

REPORT INFORMATION
  Report Type: Spontaneous
  Country: US (occurrence: US)
  Receive Date: 20190605
  Receipt Date: 20190605
  Transmission Date: 20190711
  Serious: No
  Sender: FDA-Public Use
  Company Number: US-ROCHE-2274916

PATIENT
  Age: 56 Year
  Sex: Female

DRUGS (20)
  1. OCREVUS [Suspect]
     Active Substance: OCRELIZUMAB
     Indication: RELAPSING-REMITTING MULTIPLE SCLEROSIS
     Dosage: ONGOING: YES
     Route: 065
     Dates: start: 20190128
  2. BACLOFEN. [Concomitant]
     Active Substance: BACLOFEN
     Indication: MUSCLE SPASMS
     Dosage: DOSE STATED AS 3 TABLETS 3 TO 4 TIMES A DAY ;ONGOING: YES
     Route: 048
  3. TYLENOL [Concomitant]
     Active Substance: ACETAMINOPHEN
     Dosage: DOSE STATED AS TAKEN TWICE A DAY AS NEEDED ;ONGOING: YES
     Route: 048
  4. EMERGEN-C IMMUNE PLUS [Concomitant]
     Dosage: ONGOING: YES
     Route: 048
  5. MATURE MULTI [Concomitant]
     Dosage: MATURE 50+ MULTIVITAMIN/MULTIMINERAL BY KIRKLAND ;ONGOING: YES
     Route: 048
  6. TURMERIC [CURCUMA LONGA] [Concomitant]
     Dosage: ONGOING: YES
     Route: 048
  7. GABAPENTIN. [Concomitant]
     Active Substance: GABAPENTIN
     Indication: MUSCLE SPASMS
     Dosage: ONGOING: YES
     Route: 048
  8. TOLTERODINE [Concomitant]
     Active Substance: TOLTERODINE
     Indication: URINARY INCONTINENCE
     Dosage: ONGOING: YES
     Route: 048
  9. PROGESTERONE. [Concomitant]
     Active Substance: PROGESTERONE
     Indication: POSTMENOPAUSE
     Dosage: TAKEN IN THE EVENING ;ONGOING: YES
     Route: 048
  10. METHYLPHENIDATE. [Concomitant]
     Active Substance: METHYLPHENIDATE
     Indication: ATTENTION DEFICIT/HYPERACTIVITY DISORDER
     Dosage: DOSE STATED AS BEING TAKEN TWICE A DAY ;ONGOING: YES
     Route: 048
  11. MODAFINIL. [Concomitant]
     Active Substance: MODAFINIL
     Dosage: TAKEN IN THE MORNING ;ONGOING: YES
     Route: 048
  12. METHYLPHENIDATE. [Concomitant]
     Active Substance: METHYLPHENIDATE
     Dosage: DOSE STATED AS BEING TAKEN 3 TIMES A DAY ;ONGOING: YES
     Route: 048
  13. NAPROXEN. [Concomitant]
     Active Substance: NAPROXEN
     Dosage: DOSE STATED AS TAKEN TWICE A DAY
     Route: 048
  14. MINERALS NOS;VITAMINS NOS [Concomitant]
     Active Substance: MINERALS\VITAMINS
     Dosage: ONGOING: YES
     Route: 048
  15. GABAPENTIN. [Concomitant]
     Active Substance: GABAPENTIN
     Dosage: BOTH STRENGTHS STATED AS BEING TAKEN 3 TIMES A DAY ;ONGOING: YES
     Route: 048
  16. DULOXETINE. [Concomitant]
     Active Substance: DULOXETINE
     Indication: DEPRESSION
     Dosage: ONGOING: YES
     Route: 048
  17. METOPROLOL. [Concomitant]
     Active Substance: METOPROLOL
     Indication: BLOOD PRESSURE MEASUREMENT
     Dosage: DOSE STATED AS TAKEN TWICE A DAY ;ONGOING: YES
     Route: 048
  18. 4-AMINOPYRIDINE [Concomitant]
     Active Substance: DALFAMPRIDINE
     Dosage: 3 CAPSULES IN MORNING AND 2 CAPSULES IN EVENING ;ONGOING: YES
     Route: 048
  19. TIZANIDINE. [Concomitant]
     Active Substance: TIZANIDINE
     Indication: MUSCLE SPASMS
     Dosage: STATED AS BEING TAKEN AT NIGHT ;ONGOING: YES
     Route: 048
  20. OCREVUS [Suspect]
     Active Substance: OCRELIZUMAB
     Route: 065
     Dates: start: 20190211

REACTIONS (3)
  - Dysphagia [Unknown]
  - Throat irritation [Recovered/Resolved with Sequelae]
  - Vision blurred [Unknown]

NARRATIVE: CASE EVENT DATE: 20190128
